FAERS Safety Report 5610435-7 (Version None)
Quarter: 2008Q1

REPORT INFORMATION
  Report Type: 
  Country: None (occurrence: None)
  Receive Date: 20080128
  Receipt Date: 20080116
  Transmission Date: 20080703
  Serious: Yes (Hospitalization)
  Sender: FDA-Public Use
  Company Number: FABR-1000038

PATIENT
  Age: 47 Year
  Sex: Male

DRUGS (2)
  1. FABRAZYME [Suspect]
     Indication: FABRY'S DISEASE
     Dosage: 1 MG/KG, Q2W; INTRAVENOUS, 1 MG/KG, INTRAVENOUG
     Route: 042
     Dates: start: 19980603, end: 19981002
  2. FABRAZYME [Suspect]
     Indication: FABRY'S DISEASE
     Dosage: 1 MG/KG, Q2W; INTRAVENOUS, 1 MG/KG, INTRAVENOUG
     Route: 042
     Dates: start: 20000714

REACTIONS (8)
  - BLADDER DISORDER [None]
  - BLADDER PERFORATION [None]
  - CHEST PAIN [None]
  - DYSPNOEA [None]
  - FATIGUE [None]
  - IATROGENIC INJURY [None]
  - POST PROCEDURAL COMPLICATION [None]
  - PROSTATIC DISORDER [None]
